FAERS Safety Report 9270489 (Version 2)
Quarter: 2013Q2

REPORT INFORMATION
  Report Type: Spontaneous
  Country: CA (occurrence: CA)
  Receive Date: 20130503
  Receipt Date: 20130514
  Transmission Date: 20140414
  Serious: Yes (Other)
  Sender: FDA-Public Use
  Company Number: CA-009507513-1305CAN001547

PATIENT
  Age: 60 Year
  Sex: Female

DRUGS (3)
  1. VICTRELIS TRIPLE [Suspect]
     Indication: HEPATITIS C
     Dosage: 800 MG, TID
     Route: 048
     Dates: start: 20120404, end: 20121114
  2. VICTRELIS TRIPLE [Suspect]
     Dosage: 100 MICROGRAM, UNK
     Route: 058
     Dates: start: 20120307, end: 2012
  3. VICTRELIS TRIPLE [Suspect]
     Dosage: 800 MG, BID
     Route: 048
     Dates: start: 20120307, end: 2012

REACTIONS (3)
  - Breast cancer [Unknown]
  - Therapy responder [Unknown]
  - Mastectomy [Unknown]
